FAERS Safety Report 14898603 (Version 2)
Quarter: 2019Q2

REPORT INFORMATION
  Report Type: Report from Study
  Country: CA (occurrence: CA)
  Receive Date: 20180515
  Receipt Date: 20190514
  Transmission Date: 20190711
  Serious: Yes (Life-Threatening, Other)
  Sender: FDA-Public Use
  Company Number: CA-ROCHE-1927180

PATIENT
  Age: 46 Year
  Sex: Female

DRUGS (4)
  1. OLMETEC [Concomitant]
     Active Substance: OLMESARTAN MEDOXOMIL
  2. FOLIC ACID. [Concomitant]
     Active Substance: FOLIC ACID
  3. ACTEMRA [Suspect]
     Active Substance: TOCILIZUMAB
     Indication: RHEUMATOID ARTHRITIS
     Dosage: START DATE: 24/APR/2017
     Route: 058
  4. PLAQUENIL [Concomitant]
     Active Substance: HYDROXYCHLOROQUINE SULFATE

REACTIONS (8)
  - Joint stiffness [Not Recovered/Not Resolved]
  - Rheumatoid arthritis [Recovered/Resolved]
  - Stomatitis [Unknown]
  - Therapeutic response shortened [Unknown]
  - Musculoskeletal stiffness [Not Recovered/Not Resolved]
  - Gingival recession [Unknown]
  - Hypoaesthesia [Unknown]
  - Varicose vein [Unknown]

NARRATIVE: CASE EVENT DATE: 201704
